FAERS Safety Report 11269951 (Version 7)
Quarter: 2016Q4

REPORT INFORMATION
  Report Type: Report from Study
  Country: CA (occurrence: CA)
  Receive Date: 20150714
  Receipt Date: 20161108
  Transmission Date: 20170206
  Serious: Yes (Other)
  Sender: FDA-Public Use
  Company Number: CA-INCYTE CORPORATION-2014IN004124

PATIENT
  Sex: Male

DRUGS (10)
  1. JAKAVI [Suspect]
     Active Substance: RUXOLITINIB
     Dosage: 10 MG, BID
     Route: 048
  2. JAKAVI [Suspect]
     Active Substance: RUXOLITINIB
     Dosage: 5 MG, BID
     Route: 048
  3. HYDREA [Concomitant]
     Active Substance: HYDROXYUREA
     Dosage: 2 DF, QD
     Route: 065
  4. JAKAVI [Suspect]
     Active Substance: RUXOLITINIB
     Dosage: 10 MG, QD
     Route: 048
  5. HYDREA [Concomitant]
     Active Substance: HYDROXYUREA
     Dosage: 2 DF, QD
  6. JAKAVI [Suspect]
     Active Substance: RUXOLITINIB
     Indication: MYELOFIBROSIS
     Dosage: 20 MG, BID
     Route: 048
     Dates: start: 201410
  7. HYDREA [Concomitant]
     Active Substance: HYDROXYUREA
     Indication: PRODUCT USED FOR UNKNOWN INDICATION
     Dosage: UNK
     Route: 065
  8. JAKAVI [Suspect]
     Active Substance: RUXOLITINIB
     Dosage: 15 MG, BID
     Route: 048
  9. JAKAVI [Suspect]
     Active Substance: RUXOLITINIB
     Dosage: 5 MG, BID
     Route: 048
  10. HYDREA [Concomitant]
     Active Substance: HYDROXYUREA
     Dosage: 2 DF, QD

REACTIONS (21)
  - Palpitations [Unknown]
  - Fatigue [Unknown]
  - Hypertrichosis [Unknown]
  - Wrong technique in product usage process [Unknown]
  - Memory impairment [Unknown]
  - Red blood cell count decreased [Recovering/Resolving]
  - Haemoglobin decreased [Unknown]
  - Abdominal distension [Unknown]
  - Dyspepsia [Recovered/Resolved]
  - Muscular weakness [Unknown]
  - Fall [Unknown]
  - Hepatic enzyme increased [Unknown]
  - Hernia [Unknown]
  - Hypoaesthesia [Unknown]
  - White blood cell count increased [Recovering/Resolving]
  - Hyperhidrosis [Unknown]
  - Night sweats [Unknown]
  - Abdominal pain [Unknown]
  - Mouth ulceration [Recovering/Resolving]
  - Enzyme level increased [Unknown]
  - Influenza [Unknown]
